FAERS Safety Report 20449669 (Version 1)
Quarter: 2022Q1

REPORT INFORMATION
  Report Type: Spontaneous
  Country: US (occurrence: None)
  Receive Date: 20220209
  Receipt Date: 20220209
  Transmission Date: 20220423
  Serious: Yes (Hospitalization)
  Sender: FDA-Public Use
  Company Number: None

PATIENT
  Sex: Female
  Weight: 51.3 kg

DRUGS (3)
  1. FLUOROURACIL [Suspect]
     Active Substance: FLUOROURACIL
     Dates: end: 20220125
  2. IRINOTECAN HYDROCHLORIDE [Suspect]
     Active Substance: IRINOTECAN HYDROCHLORIDE
     Dates: end: 20220125
  3. LEUCOVORIN CALCIUM [Suspect]
     Active Substance: LEUCOVORIN CALCIUM
     Dates: end: 20220125

REACTIONS (9)
  - Gastrointestinal haemorrhage [None]
  - Device occlusion [None]
  - Generalised oedema [None]
  - Blood culture positive [None]
  - Bacterial infection [None]
  - Ascites [None]
  - Haemoglobin decreased [None]
  - Liver function test increased [None]
  - Blood bilirubin increased [None]

NARRATIVE: CASE EVENT DATE: 20220205
